FAERS Safety Report 25414188 (Version 2)
Quarter: 2025Q2

REPORT INFORMATION
  Report Type: Spontaneous
  Country: CN (occurrence: CN)
  Receive Date: 20250609
  Receipt Date: 20250617
  Transmission Date: 20250717
  Serious: Yes (Other)
  Sender: SANOFI AVENTIS
  Company Number: CN-SANOFI-02542959

PATIENT
  Age: 53 Year
  Sex: Female

DRUGS (5)
  1. DUPIXENT [Suspect]
     Active Substance: DUPILUMAB
     Indication: Rash
     Dates: start: 20250528, end: 20250528
  2. DUPIXENT [Suspect]
     Active Substance: DUPILUMAB
     Indication: Pruritus
  3. HALOMETASONE [Concomitant]
     Active Substance: HALOMETASONE
     Dosage: BID
  4. CETIRIZINE HYDROCHLORIDE [Concomitant]
     Active Substance: CETIRIZINE HYDROCHLORIDE
     Dosage: QD
  5. TACROLIMUS [Concomitant]
     Active Substance: TACROLIMUS
     Dosage: BID

REACTIONS (4)
  - Blindness unilateral [Unknown]
  - Retinal vein occlusion [Unknown]
  - Macular oedema [Unknown]
  - Off label use [Unknown]

NARRATIVE: CASE EVENT DATE: 20250528
